FAERS Safety Report 15831354 (Version 1)
Quarter: 2019Q1

REPORT INFORMATION
  Report Type: Spontaneous
  Country: US (occurrence: US)
  Receive Date: 20190116
  Receipt Date: 20190116
  Transmission Date: 20190417
  Serious: Yes (Death)
  Sender: FDA-Public Use
  Company Number: US-INSYS THERAPEUTICS, INC-INS201901-000215

PATIENT
  Age: 55 Year
  Sex: Female

DRUGS (7)
  1. CYCLOBENZAPRINE. [Suspect]
     Active Substance: CYCLOBENZAPRINE
     Dates: start: 2017
  2. NORTRIPTYLINE [Suspect]
     Active Substance: NORTRIPTYLINE
     Dates: start: 2017
  3. ALCOHOL. [Suspect]
     Active Substance: ALCOHOL
     Dates: start: 2017
  4. FENTANYL. [Suspect]
     Active Substance: FENTANYL
     Indication: PRODUCT USED FOR UNKNOWN INDICATION
     Dates: start: 2017
  5. OXYCODONE [Suspect]
     Active Substance: OXYCODONE
     Dates: start: 2017
  6. AMITRIPTYLINE [Suspect]
     Active Substance: AMITRIPTYLINE
     Dates: start: 2017
  7. MORPHINE [Suspect]
     Active Substance: MORPHINE
     Dates: start: 2017

REACTIONS (1)
  - Cardio-respiratory arrest [Fatal]

NARRATIVE: CASE EVENT DATE: 2017
